FAERS Safety Report 4945978-2 (Version None)
Quarter: 2006Q1

REPORT INFORMATION
  Report Type: 
  Country: None (occurrence: None)
  Receive Date: 20060203
  Receipt Date: 20050512
  Transmission Date: 20060701
  Serious: Yes (Other)
  Sender: FDA-Public Use
  Company Number: MK200505-0139-1

PATIENT
  Sex: Female

DRUGS (3)
  1. OXYCODONE 5/APAP 500 [Suspect]
     Indication: BACK PAIN
     Dosage: 1-2 TABS Q 4H PRN, PO
     Route: 048
     Dates: start: 20050506, end: 20050510
  2. OXYCODONE 5/APAP 500 [Suspect]
     Indication: MIGRAINE
     Dosage: 1-2 TABS Q 4H PRN, PO
     Route: 048
     Dates: start: 20050506, end: 20050510
  3. TETRACYCLINE [Concomitant]

REACTIONS (5)
  - CONFUSIONAL STATE [None]
  - DRUG INEFFECTIVE [None]
  - FEELING ABNORMAL [None]
  - NAUSEA [None]
  - STOMACH DISCOMFORT [None]
